FAERS Safety Report 11400764 (Version 3)
Quarter: 2015Q3

REPORT INFORMATION
  Report Type: Report from Study
  Country: US (occurrence: US)
  Receive Date: 20150820
  Receipt Date: 20150911
  Transmission Date: 20151125
  Serious: No
  Sender: FDA-Public Use
  Company Number: US-AMGEN-USASP2015082911

PATIENT
  Age: 80 Year
  Sex: Female

DRUGS (1)
  1. ENBREL [Suspect]
     Active Substance: ETANERCEPT
     Indication: RHEUMATOID ARTHRITIS
     Dosage: EVERY 10 DAYS
     Route: 065
     Dates: start: 1988

REACTIONS (2)
  - Device issue [Unknown]
  - Pain [Unknown]

NARRATIVE: CASE EVENT DATE: 20150810
